FAERS Safety Report 11687199 (Version 1)
Quarter: 2015Q4

REPORT INFORMATION
  Report Type: Spontaneous
  Country: IT (occurrence: IT)
  Receive Date: 20151030
  Receipt Date: 20151030
  Transmission Date: 20160304
  Serious: Yes (Life-Threatening)
  Sender: FDA-Public Use
  Company Number: IT-TEVA-603650ACC

PATIENT
  Age: 57 Year
  Sex: Female

DRUGS (3)
  1. ANAFRANIL [Suspect]
     Active Substance: CLOMIPRAMINE HYDROCHLORIDE
     Indication: SUICIDE ATTEMPT
     Dosage: 500 MG TOTAL
     Route: 048
     Dates: start: 20151007, end: 20151007
  2. OLANZAPINA TEVA - 10 MG COMPRESSE RIVESTITE CON FILM - TEVA B.V. [Suspect]
     Active Substance: OLANZAPINE
     Indication: SUICIDE ATTEMPT
     Dosage: 500 MG TOTAL
     Route: 048
     Dates: start: 20151007, end: 20151007
  3. DELORAZEPAM ABC - 1 MG/ML GOCCE ORALI, SOLUZIONE [Concomitant]
     Indication: ANXIETY DISORDER
     Dosage: 10 GTT
     Route: 048
     Dates: end: 20151006

REACTIONS (6)
  - Toxicity to various agents [Recovered/Resolved]
  - Suicide attempt [Unknown]
  - Muscle contractions involuntary [Recovered/Resolved]
  - Loss of consciousness [Recovered/Resolved]
  - Drug abuse [Unknown]
  - Mydriasis [Recovered/Resolved]

NARRATIVE: CASE EVENT DATE: 201510
